FAERS Safety Report 4848652-6 (Version None)
Quarter: 2005Q4

REPORT INFORMATION
  Report Type: 
  Country: None (occurrence: None)
  Receive Date: 20051206
  Receipt Date: 20051125
  Transmission Date: 20060501
  Serious: Yes (Life-Threatening, Hospitalization)
  Sender: FDA-Public Use
  Company Number: 2005161557

PATIENT
  Age: 69 Year
  Sex: Female

DRUGS (12)
  1. ZOLOFT [Suspect]
     Indication: DEPRESSION
     Dosage: 50 MG (50 MG), ORAL
     Route: 048
  2. VASTAREL (TRIMETAZIDINE HYDROCHLORIDE) [Concomitant]
  3. NEXIUM [Concomitant]
  4. FBC (ASCORBIC ACID, CALCIUM PHOSPHATE, FERROUS FUMARATE, FOLIC ACID, N [Concomitant]
  5. MADOPAR (BENSERAZIDE HYDROCHLORIDE, LEVODOPA) [Concomitant]
  6. MOSEGOR (PIZOTIFEN MALEATE) [Concomitant]
  7. PLAVIX [Concomitant]
  8. ISORDIL [Concomitant]
  9. ALDACTONE [Concomitant]
  10. IMDUR [Concomitant]
  11. LASIX [Concomitant]
  12. NORFLOXACIN [Concomitant]

REACTIONS (4)
  - CARDIO-RESPIRATORY ARREST [None]
  - DEPRESSION [None]
  - PUPIL FIXED [None]
  - VENTRICULAR TACHYCARDIA [None]
